FAERS Safety Report 14813135 (Version 1)
Quarter: 2018Q2

REPORT INFORMATION
  Report Type: Spontaneous
  Country: US (occurrence: US)
  Receive Date: 20180426
  Receipt Date: 20180426
  Transmission Date: 20180711
  Serious: No
  Sender: FDA-Public Use
  Company Number: US-MALLINCKRODT-T201701616

PATIENT
  Age: 89 Year
  Sex: Female

DRUGS (4)
  1. RESTORIL [Suspect]
     Active Substance: TEMAZEPAM
     Indication: INSOMNIA
     Dosage: 15 MG X2, 1-2 TIMES EVERY OTHER NIGHT
     Route: 065
     Dates: start: 2012
  2. RESTORIL [Suspect]
     Active Substance: TEMAZEPAM
     Dosage: 30 MG
  3. TEMAZEPAM (NOVEL LABORATORIES, INC.) [Suspect]
     Active Substance: TEMAZEPAM
     Indication: INSOMNIA
     Dosage: 15 MG X2, 1-2 TIMES EVERY OTHER NIGHT
     Route: 065
  4. RESTORIL [Suspect]
     Active Substance: TEMAZEPAM
     Dosage: 7.5 MG X2, EVERY OTHER NIGHT
     Route: 048
     Dates: start: 2012

REACTIONS (6)
  - Incorrect dose administered [Unknown]
  - Drug effect variable [Unknown]
  - Therapy cessation [Unknown]
  - Product quality issue [Unknown]
  - Product solubility abnormal [None]
  - Intentional product use issue [Unknown]
